FAERS Safety Report 14288733 (Version 1)
Quarter: 2017Q4

REPORT INFORMATION
  Report Type: Spontaneous
  Country: US (occurrence: US)
  Receive Date: 20171215
  Receipt Date: 20171215
  Transmission Date: 20180321
  Serious: No
  Sender: FDA-Public Use
  Company Number: US-TEVA-809503ACC

PATIENT
  Sex: Male

DRUGS (1)
  1. PROBENECID W/COLCHICINE [Suspect]
     Active Substance: COLCHICINE\PROBENECID
     Indication: GOUT
     Dosage: 500/0.5MG

REACTIONS (1)
  - Gout [Unknown]
